FAERS Safety Report 19108280 (Version 6)
Quarter: 2022Q4

REPORT INFORMATION
  Report Type: Report from Study
  Country: US (occurrence: US)
  Receive Date: 20210408
  Receipt Date: 20221213
  Transmission Date: 20230113
  Serious: Yes (Hospitalization, Other)
  Sender: FDA-Public Use
  Company Number: NVSC2021US074897

PATIENT
  Age: 51 Year
  Sex: Male
  Weight: 115.67 kg

DRUGS (4)
  1. COSENTYX [Suspect]
     Active Substance: SECUKINUMAB
     Indication: Psoriasis
     Dosage: 300 MG/KG, QMO (EVERY 4 WEEKS)
     Route: 065
     Dates: start: 20190725
  2. LOSARTAN [Concomitant]
     Active Substance: LOSARTAN
     Indication: Product used for unknown indication
     Dosage: UNK UNK, QD
     Route: 065
  3. METFORMIN [Concomitant]
     Active Substance: METFORMIN HYDROCHLORIDE
     Indication: Product used for unknown indication
     Dosage: UNK
     Route: 065
  4. METOPROLOL [Concomitant]
     Active Substance: METOPROLOL
     Indication: Product used for unknown indication
     Dosage: UNK
     Route: 065

REACTIONS (12)
  - Aphasia [Recovered/Resolved]
  - Lymphadenopathy [Recovered/Resolved]
  - Cerebrovascular accident [Recovered/Resolved]
  - Nephrolithiasis [Unknown]
  - Transient ischaemic attack [Unknown]
  - Gastroenteritis [Unknown]
  - Influenza [Unknown]
  - Weight increased [Unknown]
  - Suspected COVID-19 [Recovered/Resolved]
  - Pyrexia [Unknown]
  - Myalgia [Unknown]
  - Fatigue [Unknown]

NARRATIVE: CASE EVENT DATE: 20210101
